FAERS Safety Report 7387014-7 (Version None)
Quarter: 2011Q1

REPORT INFORMATION
  Report Type: 
  Country: None (occurrence: None)
  Receive Date: 20110331
  Receipt Date: 20110326
  Transmission Date: 20110831
  Serious: Yes (Other)
  Sender: FDA-Public Use
  Company Number: FR-ABBOTT-11P-056-0714755-00

PATIENT
  Age: 51 Year
  Sex: Male

DRUGS (11)
  1. LACIDIPINE [Interacting]
  2. RAMIPRIL [Concomitant]
     Indication: PRODUCT USED FOR UNKNOWN INDICATION
  3. ROSUVASTATIN [Concomitant]
     Indication: PRODUCT USED FOR UNKNOWN INDICATION
  4. ACETYLSALICYLIC ACID [Concomitant]
     Indication: PRODUCT USED FOR UNKNOWN INDICATION
  5. LACIDIPINE [Interacting]
     Indication: PRODUCT USED FOR UNKNOWN INDICATION
  6. LOPINAVIR/RITONAVIR [Suspect]
     Indication: PROPHYLAXIS AGAINST HIV INFECTION
     Dosage: 400/100 MG TWICE DAILY
  7. METOPROLOL [Interacting]
     Indication: PRODUCT USED FOR UNKNOWN INDICATION
  8. EMTRICITABINE/TENOFOVIR DISOPROXIL FUMARATE [Concomitant]
     Indication: PROPHYLAXIS AGAINST HIV INFECTION
     Dosage: 200/245 MG ONCE DAILY
  9. METOPROLOL [Interacting]
  10. RAMIPRIL [Concomitant]
  11. LEVOTHYROXINE SODIUM [Concomitant]
     Indication: PRODUCT USED FOR UNKNOWN INDICATION

REACTIONS (4)
  - BRADYCARDIA [None]
  - HYPOTENSION [None]
  - DRUG INTERACTION [None]
  - ATRIOVENTRICULAR BLOCK COMPLETE [None]
